FAERS Safety Report 22709012 (Version 2)
Quarter: 2025Q2

REPORT INFORMATION
  Report Type: Spontaneous
  Country: GB (occurrence: GB)
  Receive Date: 20230717
  Receipt Date: 20250620
  Transmission Date: 20250717
  Serious: No
  Sender: CELLTRION
  Company Number: GB-CELLTRION INC.-2023GB014103

PATIENT

DRUGS (1)
  1. INFLIXIMAB [Suspect]
     Active Substance: INFLIXIMAB
     Indication: Behcet^s syndrome
     Route: 058
     Dates: start: 202208

REACTIONS (1)
  - Off label use [Unknown]
